FAERS Safety Report 24196040 (Version 1)
Quarter: 2024Q3

REPORT INFORMATION
  Report Type: Report from Study
  Country: US (occurrence: US)
  Receive Date: 20240809
  Receipt Date: 20240809
  Transmission Date: 20241016
  Serious: Yes (Other)
  Sender: ABBVIE
  Company Number: US-ABBVIE-5709895

PATIENT
  Sex: Female

DRUGS (3)
  1. RINVOQ [Suspect]
     Active Substance: UPADACITINIB
     Indication: Rheumatoid arthritis
     Dosage: FORM STRENGTH: 15 MG
     Route: 048
     Dates: start: 202312, end: 202407
  2. RINVOQ [Suspect]
     Active Substance: UPADACITINIB
     Indication: Rheumatoid arthritis
     Route: 048
     Dates: start: 20231110
  3. RINVOQ [Suspect]
     Active Substance: UPADACITINIB
     Indication: Rheumatoid arthritis
     Route: 048

REACTIONS (27)
  - Squamous cell carcinoma of skin [Recovering/Resolving]
  - Acne pustular [Not Recovered/Not Resolved]
  - Musculoskeletal stiffness [Not Recovered/Not Resolved]
  - Pain [Not Recovered/Not Resolved]
  - Lip pain [Not Recovered/Not Resolved]
  - Papule [Not Recovered/Not Resolved]
  - Skin ulcer [Unknown]
  - Lip scab [Not Recovered/Not Resolved]
  - Oral candidiasis [Recovered/Resolved]
  - Gingival bleeding [Recovered/Resolved]
  - Oral herpes [Unknown]
  - Temporomandibular pain and dysfunction syndrome [Recovering/Resolving]
  - Asthenia [Not Recovered/Not Resolved]
  - Acne [Unknown]
  - Fatigue [Not Recovered/Not Resolved]
  - Balance disorder [Not Recovered/Not Resolved]
  - Ulcer [Recovering/Resolving]
  - Diarrhoea [Unknown]
  - Arthralgia [Unknown]
  - Inflammation [Unknown]
  - Limb injury [Recovering/Resolving]
  - Wound haemorrhage [Recovering/Resolving]
  - Wound [Recovering/Resolving]
  - Candida infection [Recovered/Resolved]
  - Herpes virus infection [Not Recovered/Not Resolved]
  - Impaired healing [Recovering/Resolving]
  - Post procedural haemorrhage [Recovered/Resolved]

NARRATIVE: CASE EVENT DATE: 20230101
